FAERS Safety Report 22380742 (Version 1)
Quarter: 2023Q2

REPORT INFORMATION
  Report Type: Spontaneous
  Country: US (occurrence: US)
  Receive Date: 20230530
  Receipt Date: 20230530
  Transmission Date: 20230721
  Serious: No
  Sender: FDA-Public Use
  Company Number: US-AMGEN-USASP2023090041

PATIENT

DRUGS (1)
  1. ERENUMAB [Suspect]
     Active Substance: ERENUMAB
     Indication: Migraine prophylaxis
     Dosage: 70 MILLIGRAM
     Route: 065

REACTIONS (5)
  - Muscle spasms [Unknown]
  - Constipation [Unknown]
  - Therapeutic product effect decreased [Unknown]
  - Off label use [Unknown]
  - Adverse event [Unknown]
